FAERS Safety Report 16580489 (Version 5)
Quarter: 2021Q4

REPORT INFORMATION
  Report Type: Report from Study
  Country: US (occurrence: US)
  Receive Date: 20190716
  Receipt Date: 20211109
  Transmission Date: 20220303
  Serious: Yes (Hospitalization)
  Sender: FDA-Public Use
  Company Number: US-JAZZ-JPI-P-026453

PATIENT
  Age: 11 Year
  Sex: Male
  Weight: 59.091 kg

DRUGS (8)
  1. XYREM [Suspect]
     Active Substance: SODIUM OXYBATE
     Indication: Narcolepsy
     Dosage: 2.25 GRAM, BID
     Route: 048
     Dates: start: 20121103, end: 20121112
  2. XYREM [Suspect]
     Active Substance: SODIUM OXYBATE
     Indication: Cataplexy
     Dosage: 2.5 GRAM,BID FIRST DOSE
     Route: 048
     Dates: start: 20121113, end: 20121113
  3. XYREM [Suspect]
     Active Substance: SODIUM OXYBATE
     Dosage: 2.5 GRAM,BID
     Route: 048
     Dates: start: 20121114, end: 201311
  4. XYREM [Suspect]
     Active Substance: SODIUM OXYBATE
     Dosage: 3 GRAM, BID,FIRST DOSE
     Route: 048
     Dates: start: 202004
  5. XYREM [Suspect]
     Active Substance: SODIUM OXYBATE
     Dosage: 1 GRAM, BID,SECOND DOSE
     Route: 048
     Dates: start: 202004
  6. METHYLPHENIDATE HYDROCHLORIDE [Concomitant]
     Active Substance: METHYLPHENIDATE HYDROCHLORIDE
     Indication: Behaviour disorder
     Route: 065
     Dates: start: 201210, end: 20121115
  7. METHYLPHENIDATE HYDROCHLORIDE [Concomitant]
     Active Substance: METHYLPHENIDATE HYDROCHLORIDE
     Indication: Somnolence
  8. ZINC [Concomitant]
     Active Substance: ZINC
     Indication: Product used for unknown indication
     Route: 065

REACTIONS (12)
  - COVID-19 [Recovering/Resolving]
  - Moaning [Recovered/Resolved]
  - Obesity [Unknown]
  - Abdominal discomfort [Not Recovered/Not Resolved]
  - Mood altered [Not Recovered/Not Resolved]
  - Discomfort [Recovered/Resolved]
  - Vertigo [Recovered/Resolved]
  - Extra dose administered [Unknown]
  - Somnolence [Recovered/Resolved]
  - Nausea [Recovered/Resolved]
  - Blood pressure increased [Not Recovered/Not Resolved]
  - Sleep apnoea syndrome [Not Recovered/Not Resolved]

NARRATIVE: CASE EVENT DATE: 20121101
